FAERS Safety Report 16772272 (Version 1)
Quarter: 2019Q3

REPORT INFORMATION
  Report Type: Report from Study
  Country: US (occurrence: US)
  Receive Date: 20190904
  Receipt Date: 20190904
  Transmission Date: 20191005
  Serious: No
  Sender: FDA-Public Use
  Company Number: US-EMD SERONO-9096600

PATIENT
  Age: 57 Year
  Sex: Female

DRUGS (1)
  1. MAVENCLAD [Suspect]
     Active Substance: CLADRIBINE
     Indication: MULTIPLE SCLEROSIS
     Dosage: MAVENCLAD TREATMENT: TWO TABLETS (20 MG EACH) ONCE DAILY FOR 5 DAYS FOR A TOTAL OF 10 TABLETS (100 M
     Route: 048
     Dates: start: 20190513, end: 20190517

REACTIONS (1)
  - Diarrhoea [Unknown]

NARRATIVE: CASE EVENT DATE: 201905
